FAERS Safety Report 8591111-8 (Version None)
Quarter: 2012Q3

REPORT INFORMATION
  Report Type: 
  Country: None (occurrence: None)
  Receive Date: 20120813
  Receipt Date: 20120730
  Transmission Date: 20120928
  Serious: Yes (Other)
  Sender: FDA-Public Use
  Company Number: CHPA2012US017112

PATIENT
  Sex: Female

DRUGS (3)
  1. EXCEDRIN EXTRA STRENGTH TABLETS [Suspect]
     Indication: BACK PAIN
     Dosage: 2DF, 3-4 TIMES A DAY
     Route: 048
  2. EXCEDRIN EXTRA STRENGTH TABLETS [Suspect]
     Dosage: 2DF, 5-6 TIMES A DAY
     Route: 048
  3. IBUPROFEN [Suspect]
     Indication: BACK PAIN
     Dosage: 8
     Route: 048

REACTIONS (2)
  - OVERDOSE [None]
  - SINUSITIS [None]
